FAERS Safety Report 16135462 (Version 7)
Quarter: 2020Q3

REPORT INFORMATION
  Report Type: Report from Study
  Country: RU (occurrence: RU)
  Receive Date: 20190329
  Receipt Date: 20190430
  Transmission Date: 20201105
  Serious: Yes (Hospitalization)
  Sender: FDA-Public Use
  Company Number: RU-JNJFOC-20190336542

PATIENT
  Age: 30 Year
  Sex: Female
  Weight: 57 kg

DRUGS (10)
  1. LORATADIN [Concomitant]
     Active Substance: LORATADINE
     Route: 048
     Dates: start: 20190108
  2. LORATADINE. [Concomitant]
     Active Substance: LORATADINE
     Indication: URTICARIA
     Route: 048
     Dates: start: 20180713
  3. DOXYCYCLINE. [Concomitant]
     Active Substance: DOXYCYCLINE
     Route: 048
     Dates: start: 20190306, end: 20190312
  4. USTEKINUMAB [Suspect]
     Active Substance: USTEKINUMAB
     Indication: COLITIS ULCERATIVE
     Route: 058
     Dates: start: 20160210
  5. METRONIDAZOLE. [Concomitant]
     Active Substance: METRONIDAZOLE
     Route: 048
     Dates: start: 20190306, end: 20190310
  6. FLUCONAZOLE. [Concomitant]
     Active Substance: FLUCONAZOLE
     Route: 048
     Dates: start: 20190306, end: 20190308
  7. BIFIDUMBACTERIN [Concomitant]
     Active Substance: BIFIDOBACTERIUM BIFIDUM
     Dosage: 15 (UNITS NOT SPECIFIED)
     Route: 048
     Dates: start: 20190306, end: 20190315
  8. USTEKINUMAB [Suspect]
     Active Substance: USTEKINUMAB
     Indication: COLITIS ULCERATIVE
     Route: 058
     Dates: start: 20160407
  9. USTEKINUMAB [Suspect]
     Active Substance: USTEKINUMAB
     Indication: COLITIS ULCERATIVE
     Route: 058
  10. SUPRASTIN [Concomitant]
     Active Substance: CHLOROPYRAMINE HYDROCHLORIDE
     Route: 048
     Dates: start: 20190306, end: 20190310

REACTIONS (1)
  - Salpingo-oophoritis [Recovered/Resolved]

NARRATIVE: CASE EVENT DATE: 20190320
